FAERS Safety Report 10626423 (Version 1)
Quarter: 2014Q4

REPORT INFORMATION
  Report Type: Spontaneous
  Country: US (occurrence: US)
  Receive Date: 20141204
  Receipt Date: 20141204
  Transmission Date: 20150529
  Serious: No
  Sender: FDA-Public Use
  Company Number: US-TARO-2013P1020564

PATIENT
  Age: 56 Year
  Sex: Female
  Weight: 79.83 kg

DRUGS (3)
  1. TYLENOL WITH CODEINE [Concomitant]
     Active Substance: ACETAMINOPHEN\CODEINE PHOSPHATE
  2. PREVACID [Concomitant]
     Active Substance: LANSOPRAZOLE
  3. TOPICORT [Suspect]
     Active Substance: DESOXIMETASONE
     Indication: ALOPECIA
     Route: 061
     Dates: start: 20130917, end: 20131017

REACTIONS (5)
  - Application site discomfort [Recovered/Resolved]
  - Application site papules [Recovering/Resolving]
  - Acne [Recovering/Resolving]
  - Application site vesicles [Recovering/Resolving]
  - Application site erythema [Recovering/Resolving]

NARRATIVE: CASE EVENT DATE: 201310
